FAERS Safety Report 9778292 (Version 1)
Quarter: 2013Q4

REPORT INFORMATION
  Report Type: Spontaneous
  Country: US (occurrence: US)
  Receive Date: 20131223
  Receipt Date: 20131223
  Transmission Date: 20140711
  Serious: No
  Sender: FDA-Public Use
  Company Number: US-VERTEX PHARMACEUTICALS INC-2013-011904

PATIENT
  Age: 57 Year
  Sex: Female
  Weight: 73 kg

DRUGS (8)
  1. INCIVEK [Suspect]
     Indication: HEPATITIS C
     Dosage: 750 MG, TID
     Route: 048
     Dates: start: 201310
  2. COPEGUS [Suspect]
     Indication: HEPATITIS C
     Dosage: 3 DF, BID
     Dates: start: 201310
  3. PEGASYS [Suspect]
     Indication: HEPATITIS C
     Dosage: 180 ?G, QW
     Dates: start: 201310
  4. TRAZODONE [Concomitant]
     Indication: DEPRESSION
     Route: 048
  5. INVEGA [Concomitant]
     Indication: MAJOR DEPRESSION
     Route: 048
  6. WELLBUTRIN [Concomitant]
     Indication: MOOD ALTERED
     Route: 048
  7. ABILIFY [Concomitant]
     Indication: MOOD ALTERED
     Route: 048
  8. PERCOCET [Concomitant]
     Indication: BACK PAIN
     Route: 048

REACTIONS (3)
  - Drug dose omission [Unknown]
  - Blister [Not Recovered/Not Resolved]
  - Rash [Not Recovered/Not Resolved]
